FAERS Safety Report 22389013 (Version 2)
Quarter: 2023Q2

REPORT INFORMATION
  Report Type: Spontaneous
  Country: ES (occurrence: ES)
  Receive Date: 20230531
  Receipt Date: 20230607
  Transmission Date: 20230722
  Serious: Yes (Hospitalization, Other)
  Sender: FDA-Public Use
  Company Number: ES-Accord-359695

PATIENT
  Age: 71 Year
  Sex: Male

DRUGS (8)
  1. QUETIAPINE FUMARATE [Suspect]
     Active Substance: QUETIAPINE FUMARATE
     Indication: Schizoaffective disorder bipolar type
     Dosage: 625 MG, QD
     Route: 065
  2. PHENYLEPHRINE HYDROCHLORIDE [Suspect]
     Active Substance: PHENYLEPHRINE HYDROCHLORIDE
     Indication: Product used for unknown indication
     Route: 065
  3. EPHEDRINE HYDROCHLORIDE [Suspect]
     Active Substance: EPHEDRINE HYDROCHLORIDE
     Indication: Product used for unknown indication
     Dosage: UNK
     Route: 065
  4. VALPROIC ACID [Concomitant]
     Active Substance: VALPROIC ACID
     Indication: Schizoaffective disorder bipolar type
     Dosage: 1.4 G, QD
     Route: 065
  5. CLONAZEPAM [Concomitant]
     Active Substance: CLONAZEPAM
     Indication: Schizoaffective disorder bipolar type
     Dosage: 2 MG, QD
     Route: 065
  6. LORMETAZEPAM [Concomitant]
     Active Substance: LORMETAZEPAM
     Indication: Schizoaffective disorder bipolar type
     Dosage: 2 MG, QD
     Route: 065
  7. RISPERIDONE [Concomitant]
     Active Substance: RISPERIDONE
     Indication: Schizoaffective disorder bipolar type
     Dosage: 3 MG, QD
     Route: 065
  8. RISPERIDONE [Concomitant]
     Active Substance: RISPERIDONE
     Dosage: 2 VIALS OF 50 MG RISPERIDONE EVERY 15 DAYS
     Route: 065

REACTIONS (1)
  - Hypotension [Recovered/Resolved]
